FAERS Safety Report 12678408 (Version 3)
Quarter: 2016Q4

REPORT INFORMATION
  Report Type: Report from Study
  Country: None (occurrence: BR)
  Receive Date: 20160823
  Receipt Date: 20161213
  Transmission Date: 20170207
  Serious: Yes (Death, Hospitalization, Other)
  Sender: FDA-Public Use
  Company Number: BR-ABBVIE-16K-020-1705789-00

PATIENT
  Sex: Male

DRUGS (1)
  1. HUMIRA [Suspect]
     Active Substance: ADALIMUMAB
     Indication: ANKYLOSING SPONDYLITIS
     Route: 058
     Dates: start: 20140624, end: 2016

REACTIONS (8)
  - Chronic obstructive pulmonary disease [Fatal]
  - Pain [Unknown]
  - Immunodeficiency [Unknown]
  - Influenza [Unknown]
  - Pneumonia [Not Recovered/Not Resolved]
  - Pulmonary mycosis [Unknown]
  - Bullous lung disease [Unknown]
  - Disease complication [Fatal]

NARRATIVE: CASE EVENT DATE: 2016
